FAERS Safety Report 7794661-7 (Version None)
Quarter: 2011Q4

REPORT INFORMATION
  Report Type: 
  Country: None (occurrence: None)
  Receive Date: 20111004
  Receipt Date: 20111003
  Transmission Date: 20120403
  Serious: Yes (Death, Life-Threatening, Hospitalization)
  Sender: FDA-Public Use
  Company Number: JP-SHIRE-SPV1-2010-01954

PATIENT
  Sex: Female

DRUGS (18)
  1. BERIZYM                            /00517401/ [Concomitant]
     Indication: PRODUCT USED FOR UNKNOWN INDICATION
     Dosage: 75 MG, UNKNOWN
     Route: 048
  2. LAXOBERON [Concomitant]
     Indication: PRODUCT USED FOR UNKNOWN INDICATION
     Dosage: 4 ML, AS REQ'D
     Route: 048
  3. RENAGEL [Concomitant]
     Indication: HYPERPHOSPHATAEMIA
     Dosage: 750 MG, UNKNOWN
     Route: 048
     Dates: start: 20090513, end: 20090903
  4. ZOLPIDEM [Concomitant]
     Indication: PRODUCT USED FOR UNKNOWN INDICATION
     Dosage: 10 MG, UNKNOWN
     Route: 048
  5. VASOPRESSOR [Suspect]
     Indication: DISSEMINATED INTRAVASCULAR COAGULATION
     Dosage: UNK, UNKNOWN
     Route: 065
     Dates: start: 20100824
  6. SENNARIDE [Concomitant]
     Indication: PRODUCT USED FOR UNKNOWN INDICATION
     Dosage: 48 MG, UNKNOWN
     Route: 048
  7. FERRICON [Concomitant]
     Indication: PRODUCT USED FOR UNKNOWN INDICATION
     Dosage: 1 DF, UNKNOWN
     Route: 042
     Dates: start: 20090806
  8. LANTHANUM CARBONATE [Suspect]
     Indication: HYPERPHOSPHATAEMIA
     Dosage: 750 MG, OTHER (IMMEDIATELY AFTER MEALS)
     Route: 048
     Dates: start: 20090822, end: 20091026
  9. LANTHANUM CARBONATE [Suspect]
     Dosage: 1500 MG, OTHER (IMMEDIATELY AFTER MEALS)
     Route: 048
     Dates: start: 20091027, end: 20100526
  10. STOMARCON [Concomitant]
     Indication: PRODUCT USED FOR UNKNOWN INDICATION
     Dosage: 10 MG, UNKNOWN
     Route: 048
  11. GASCON [Concomitant]
     Indication: PRODUCT USED FOR UNKNOWN INDICATION
     Dosage: 240 MG, UNKNOWN
     Route: 048
  12. SIGMART [Concomitant]
     Indication: PRODUCT USED FOR UNKNOWN INDICATION
     Dosage: 7.5 MG, UNKNOWN
     Route: 048
  13. ALLEGRA [Concomitant]
     Indication: PRODUCT USED FOR UNKNOWN INDICATION
     Dosage: 120 MG, UNKNOWN
     Route: 048
  14. CELECOXIB [Concomitant]
     Indication: PRODUCT USED FOR UNKNOWN INDICATION
     Dosage: 200 MG, UNKNOWN
     Route: 048
  15. TRYPTANOL                          /00002202/ [Concomitant]
     Indication: PRODUCT USED FOR UNKNOWN INDICATION
     Dosage: 40 MG, UNKNOWN
     Route: 048
  16. PROSTANDIN                         /00501501/ [Concomitant]
     Indication: PRODUCT USED FOR UNKNOWN INDICATION
     Dosage: 40 ?G, UNKNOWN
     Route: 042
  17. ASPIRIN [Concomitant]
     Indication: PRODUCT USED FOR UNKNOWN INDICATION
     Dosage: 100 MG, UNKNOWN
     Route: 048
  18. NESPO [Concomitant]
     Indication: PRODUCT USED FOR UNKNOWN INDICATION
     Dosage: 15 ?G, UNK
     Route: 042

REACTIONS (9)
  - MENTAL DISORDER DUE TO A GENERAL MEDICAL CONDITION [None]
  - CEREBRAL ARTERY THROMBOSIS [None]
  - TIBIA FRACTURE [None]
  - HYPERPARATHYROIDISM SECONDARY [None]
  - HYPERPHOSPHATASAEMIA [None]
  - DISSEMINATED INTRAVASCULAR COAGULATION [None]
  - HYPERGLYCAEMIA [None]
  - SEPSIS [None]
  - FALL [None]
